FAERS Safety Report 25849525 (Version 1)
Quarter: 2025Q3

REPORT INFORMATION
  Report Type: Spontaneous
  Country: GB (occurrence: GB)
  Receive Date: 20250926
  Receipt Date: 20250926
  Transmission Date: 20251021
  Serious: Yes (Other)
  Sender: GLAXOSMITHKLINE
  Company Number: None

PATIENT
  Age: 17 Year
  Sex: Male
  Weight: 62 kg

DRUGS (1)
  1. BENZOYL PEROXIDE\CLINDAMYCIN PHOSPHATE [Suspect]
     Active Substance: BENZOYL PEROXIDE\CLINDAMYCIN PHOSPHATE
     Indication: Acne
     Dosage: 60 G, QD (APPLY ONCE A DAY IN THE EVENING)
     Route: 065

REACTIONS (3)
  - Swelling face [Recovering/Resolving]
  - Eyelid ptosis [Unknown]
  - Eyelid rash [Unknown]

NARRATIVE: CASE EVENT DATE: 20250916
